FAERS Safety Report 19051133 (Version 1)
Quarter: 2021Q1

REPORT INFORMATION
  Report Type: Spontaneous
  Country: US (occurrence: US)
  Receive Date: 20210324
  Receipt Date: 20210324
  Transmission Date: 20210420
  Serious: No
  Sender: FDA-Public Use
  Company Number: US-ALLERGAN-2103860US

PATIENT
  Age: 62 Year
  Sex: Male
  Weight: 72.57 kg

DRUGS (2)
  1. MESALAZINE 1 GM SUP [Suspect]
     Active Substance: MESALAMINE
     Indication: INFLAMMATORY BOWEL DISEASE
     Dosage: 1000 MG, QHS
     Route: 054
  2. MESALAZINE 1 GM SUP [Suspect]
     Active Substance: MESALAMINE
     Indication: COLITIS ULCERATIVE
     Dosage: 1000 MG, QHS
     Route: 054

REACTIONS (5)
  - Poor quality product administered [Unknown]
  - Product physical issue [Unknown]
  - Therapy interrupted [Unknown]
  - Poor quality product administered [Unknown]
  - Product container issue [Unknown]

NARRATIVE: CASE EVENT DATE: 202011
